FAERS Safety Report 9663218 (Version 1)
Quarter: 2013Q4

REPORT INFORMATION
  Report Type: Spontaneous
  Country: CL (occurrence: CL)
  Receive Date: 20131101
  Receipt Date: 20131101
  Transmission Date: 20140711
  Serious: Yes (Hospitalization)
  Sender: FDA-Public Use
  Company Number: CL-BIOGENIDEC-2013BI104631

PATIENT
  Age: 33 Year
  Sex: Female

DRUGS (4)
  1. AVONEX [Suspect]
     Indication: MULTIPLE SCLEROSIS
     Route: 030
     Dates: start: 20130930
  2. ESOMEPRAZOLE [Concomitant]
  3. BUPROPION [Concomitant]
  4. LAMOTRIGINE [Concomitant]

REACTIONS (1)
  - Optic neuritis [Not Recovered/Not Resolved]
